FAERS Safety Report 7640810-0 (Version None)
Quarter: 2011Q3

REPORT INFORMATION
  Report Type: 
  Country: None (occurrence: None)
  Receive Date: 20110728
  Receipt Date: 20110505
  Transmission Date: 20111222
  Serious: No
  Sender: FDA-Public Use
  Company Number: US-MUTUAL PHARMACEUTICAL COMPANY, INC.-CLCY20110056

PATIENT
  Sex: Female
  Weight: 75.818 kg

DRUGS (9)
  1. COLCRYS [Suspect]
     Indication: GOUT
     Route: 048
     Dates: start: 20110504, end: 20110504
  2. METFORMIN HCL [Concomitant]
     Indication: DIABETES MELLITUS
     Route: 048
  3. ASPIRIN [Concomitant]
     Indication: CARDIAC DISORDER
     Route: 048
  4. FOLIC ACID [Concomitant]
     Indication: PROPHYLAXIS
     Route: 048
  5. VITAMIN B-12 [Concomitant]
     Indication: PERNICIOUS ANAEMIA
  6. TYLENOL-500 [Concomitant]
     Indication: ARTHRITIS
     Route: 048
  7. MELOXICAM [Concomitant]
     Indication: ARTHRITIS
     Route: 048
  8. FUROSEMIDE [Concomitant]
     Indication: FLUID RETENTION
     Route: 048
  9. LEVOXYL [Concomitant]
     Indication: HYPOTHYROIDISM
     Route: 048

REACTIONS (2)
  - PRURITUS [None]
  - URTICARIA [None]
